FAERS Safety Report 8770448 (Version 1)
Quarter: 2012Q4

REPORT INFORMATION
  Report Type: 
  Country: US (occurrence: US)
  Receive Date: 20120906
  Receipt Date: 20120906
  Transmission Date: 20130627
  Serious: No
  Sender: FDA-Public Use
  Company Number: US-BAYER-2012-092220

PATIENT
  Age: 87 Year
  Sex: Male
  Weight: 69 kg

DRUGS (11)
  1. ALEVE CAPLET/TABLET,MIDOL EXTENDED RELIEF CAPLET [Suspect]
     Indication: ARTHRITIS
     Dosage: UNK
     Route: 048
     Dates: start: 201208, end: 20120830
  2. ASPIRIN [Concomitant]
  3. VITAMIN D [Concomitant]
  4. TRAZODONE [Concomitant]
  5. SIMVASTATIN [Concomitant]
  6. ZOCOR [Concomitant]
  7. PRIMIDONE [Concomitant]
  8. OMEPRAZOLE [Concomitant]
  9. ZOLPIDEM [Concomitant]
  10. LISINOPRIL [Concomitant]
  11. FIBER BARS [Concomitant]

REACTIONS (3)
  - Arthritis [None]
  - Faeces discoloured [Not Recovered/Not Resolved]
  - Faeces discoloured [Not Recovered/Not Resolved]
